FAERS Safety Report 18716820 (Version 1)
Quarter: 2021Q1

REPORT INFORMATION
  Report Type: Spontaneous
  Country: US (occurrence: US)
  Receive Date: 20210107
  Receipt Date: 20210107
  Transmission Date: 20210419
  Serious: Yes (Other)
  Sender: FDA-Public Use
  Company Number: None

PATIENT
  Age: 61 Year
  Sex: Male
  Weight: 76.3 kg

DRUGS (93)
  1. ALBUMIN HUMAN [Concomitant]
     Active Substance: ALBUMIN HUMAN
  2. CISATRACURIUM/NS [Concomitant]
  3. DEXMEDETOMIDINE/NS [Concomitant]
  4. FLUCONAZOLE. [Concomitant]
     Active Substance: FLUCONAZOLE
  5. FUROSEMIDE. [Concomitant]
     Active Substance: FUROSEMIDE
  6. HYDROCORTISONE SUCC [Concomitant]
  7. HYDROCORITSONE SUCC PF [Concomitant]
  8. IOHEXOL [Concomitant]
     Active Substance: IOHEXOL
  9. PANTOPRAZOLE [Concomitant]
     Active Substance: PANTOPRAZOLE
  10. POLYETHYLENE GLYC (MIRALAX) [Concomitant]
  11. SODIUM CHLORIDE. [Concomitant]
     Active Substance: SODIUM CHLORIDE
  12. SODIUM ZIRCONIUM CYCLOSILICATE. [Concomitant]
     Active Substance: SODIUM ZIRCONIUM CYCLOSILICATE
  13. ZINC SULFATE. [Concomitant]
     Active Substance: ZINC SULFATE
  14. CEFEPIME [Concomitant]
     Active Substance: CEFEPIME HYDROCHLORIDE
  15. CHOLECALCIFEROL [Concomitant]
     Active Substance: CHOLECALCIFEROL
  16. CLONIDINE. [Concomitant]
     Active Substance: CLONIDINE
  17. DOCUSATE SOD [Concomitant]
  18. FAMOTIDINE. [Concomitant]
     Active Substance: FAMOTIDINE
  19. HYDROMORPHINE/NS [Concomitant]
  20. LABETALOL [Concomitant]
     Active Substance: LABETALOL\LABETALOL HYDROCHLORIDE
  21. LIDOCAINE. [Concomitant]
     Active Substance: LIDOCAINE
  22. METHYLPREDNIS SOD SUCC [Concomitant]
  23. MIDAZOLAM. [Concomitant]
     Active Substance: MIDAZOLAM
  24. OXYCODONE [Concomitant]
     Active Substance: OXYCODONE
  25. ROCURONIUM BROMIDE. [Concomitant]
     Active Substance: ROCURONIUM BROMIDE
  26. CHLORHEXIDINE GLUCONATE ORAL RINSE 0.12% [Suspect]
     Active Substance: CHLORHEXIDINE GLUCONATE
     Indication: ANTIBIOTIC PROPHYLAXIS
     Route: 002
     Dates: start: 20201012, end: 20201113
  27. ACETAZOLAMIDE. [Concomitant]
     Active Substance: ACETAZOLAMIDE
  28. ARTIFICIAL TEARS (LACRI?LUBE) [Concomitant]
  29. ENOXAPARIN [Concomitant]
     Active Substance: ENOXAPARIN
  30. EPINEPHRINE. [Concomitant]
     Active Substance: EPINEPHRINE
  31. EPOPROSTENOL NEB [Concomitant]
  32. EPOPROSTENOL DILUENT FOR INHALATION [Concomitant]
  33. INFLUENZA VIRUS VACCINE (FLUARIX) [Concomitant]
  34. MAGNESIUM OXIDE. [Concomitant]
     Active Substance: MAGNESIUM OXIDE
  35. OCULAR LUBRICANT PRESERVED [Concomitant]
  36. TOCLIMIZUMAB [Concomitant]
  37. ACETAMINOPHEN. [Concomitant]
     Active Substance: ACETAMINOPHEN
  38. AZITHROMYCIN ANHYDROUS. [Concomitant]
     Active Substance: AZITHROMYCIN ANHYDROUS
  39. CEFTOLOAZANE?TAZOBACTAM [Concomitant]
  40. CISATRACURLUM [Concomitant]
  41. D5% NACL [Concomitant]
  42. DEXTROSE. [Concomitant]
     Active Substance: DEXTROSE
  43. FENTANYL. [Concomitant]
     Active Substance: FENTANYL
  44. HYDRALAZINE [Concomitant]
     Active Substance: HYDRALAZINE HYDROCHLORIDE
  45. INSULIN REGULAR (HUMULIN R) [Concomitant]
  46. LISINOPRIL. [Concomitant]
     Active Substance: LISINOPRIL
  47. MIDODRINE [Concomitant]
     Active Substance: MIDODRINE
  48. NICARDIPINE/NS [Concomitant]
  49. SENNA/DOCUSATE SOD TAB [Concomitant]
  50. ALBUTEROL. [Concomitant]
     Active Substance: ALBUTEROL
  51. CHLORHEXIDINE [Concomitant]
     Active Substance: CHLORHEXIDINE
  52. DSW [Concomitant]
  53. ERYTHROMYCIN LACTOBIONATE [Concomitant]
     Active Substance: ERYTHROMYCIN LACTOBIONATE
  54. FORMOTEROL [Concomitant]
     Active Substance: FORMOTEROL
  55. HEPARIN [Concomitant]
     Active Substance: HEPARIN SODIUM
  56. HYDROMORPHONE [Concomitant]
     Active Substance: HYDROMORPHONE
  57. MEROPENEM. [Concomitant]
     Active Substance: MEROPENEM
  58. NYSTATIN. [Concomitant]
     Active Substance: NYSTATIN
  59. PHENYLEPHRINE [Concomitant]
     Active Substance: PHENYLEPHRINE HYDROCHLORIDE
  60. POTASSIUM BICARBONATE. [Concomitant]
     Active Substance: POTASSIUM BICARBONATE
  61. TRAZODONE [Concomitant]
     Active Substance: TRAZODONE HYDROCHLORIDE
  62. VECURONIUM [Concomitant]
     Active Substance: VECURONIUM BROMIDE
  63. CEFTRIAXONE. [Concomitant]
     Active Substance: CEFTRIAXONE
  64. CLONAZEPAM. [Concomitant]
     Active Substance: CLONAZEPAM
  65. DIPHENHYDRAMINE. [Concomitant]
     Active Substance: DIPHENHYDRAMINE
  66. INSULIN LISPRO (HUMALOG) [Concomitant]
  67. METOCLOPRAMIDE. [Concomitant]
     Active Substance: METOCLOPRAMIDE
  68. NOREPINEPHRINE. [Concomitant]
     Active Substance: NOREPINEPHRINE
  69. POTASSIUM CHLORIDE. [Concomitant]
     Active Substance: POTASSIUM CHLORIDE
  70. ROCURONIUM [Concomitant]
     Active Substance: ROCURONIUM BROMIDE
  71. VANCOMYCIN [Concomitant]
     Active Substance: VANCOMYCIN
  72. BUDESONIDE RESPULE [Concomitant]
  73. BUDESONIDE?FORMOTEROL [Concomitant]
     Active Substance: BUDESONIDE\FORMOTEROL
  74. D10W [Concomitant]
     Active Substance: DEXTROSE\WATER
  75. HYDROCHLOROTHIAZIDE. [Concomitant]
     Active Substance: HYDROCHLOROTHIAZIDE
  76. KETAMINE [Concomitant]
     Active Substance: KETAMINE
  77. MIDAZOLEM/NS [Concomitant]
  78. OXYCODONE IR [Concomitant]
     Active Substance: OXYCODONE
  79. PROPOFOL. [Concomitant]
     Active Substance: PROPOFOL
  80. SENNA [Concomitant]
     Active Substance: SENNA LEAF\SENNOSIDES\SENNOSIDES A AND B
  81. SOD BICARB [Concomitant]
  82. VASOPRESSIN. [Concomitant]
     Active Substance: VASOPRESSIN
  83. ALBUMIN [Concomitant]
     Active Substance: ALBUMIN HUMAN
  84. ASCORBIC ACID. [Concomitant]
     Active Substance: ASCORBIC ACID
  85. DEXAMETHASONE. [Concomitant]
     Active Substance: DEXAMETHASONE
  86. LORAZEPAM. [Concomitant]
     Active Substance: LORAZEPAM
  87. MAGNESIUM SULFATE. [Concomitant]
     Active Substance: MAGNESIUM SULFATE
  88. METOPROLOL. [Concomitant]
     Active Substance: METOPROLOL
  89. MUPIROCIN. [Concomitant]
     Active Substance: MUPIROCIN
  90. PHENOBARBITAL. [Concomitant]
     Active Substance: PHENOBARBITAL
  91. PIPERACILLIN AND TAZOBACTAM [Concomitant]
     Active Substance: PIPERACILLIN SODIUM\TAZOBACTAM SODIUM
  92. QUETIAPINE. [Concomitant]
     Active Substance: QUETIAPINE
  93. REMDESIVIR (INVESTIGATIONAL) [Concomitant]

REACTIONS (4)
  - SARS-CoV-2 test positive [None]
  - Burkholderia test positive [None]
  - Product contamination [None]
  - Recalled product administered [None]

NARRATIVE: CASE EVENT DATE: 20201111
